FAERS Safety Report 24136648 (Version 2)
Quarter: 2024Q3

REPORT INFORMATION
  Report Type: Spontaneous
  Country: CN (occurrence: CN)
  Receive Date: 20240725
  Receipt Date: 20240802
  Transmission Date: 20241017
  Serious: Yes (Death, Life-Threatening, Other)
  Sender: BAYER
  Company Number: CN-BAYER-2024A107760

PATIENT
  Age: 85 Year
  Sex: Female
  Weight: 55 kg

DRUGS (2)
  1. ULTRAVIST [Suspect]
     Active Substance: IOPROMIDE
     Indication: Computerised tomogram
     Dosage: 100 ML, ONCE
     Route: 013
     Dates: start: 20240721, end: 20240721
  2. ULTRAVIST [Suspect]
     Active Substance: IOPROMIDE
     Indication: Genitourinary tract neoplasm

REACTIONS (16)
  - Hypoxic-ischaemic encephalopathy [Fatal]
  - Anaphylactic shock [Recovering/Resolving]
  - Loss of consciousness [None]
  - Agonal respiration [None]
  - Miosis [None]
  - Pupillary reflex impaired [None]
  - Carotid pulse abnormal [Recovered/Resolved]
  - Oxygen saturation decreased [Recovering/Resolving]
  - Depressed level of consciousness [None]
  - Dyspnoea [None]
  - Wheezing [None]
  - Dysphoria [None]
  - Nausea [None]
  - Blood pressure fluctuation [None]
  - Blood glucose increased [None]
  - Heart rate increased [Recovering/Resolving]

NARRATIVE: CASE EVENT DATE: 20240701
